FAERS Safety Report 6892829-5 (Version None)
Quarter: 2010Q3

REPORT INFORMATION
  Report Type: 
  Country: None (occurrence: None)
  Receive Date: 20100731
  Receipt Date: 20081001
  Transmission Date: 20110219
  Serious: No
  Sender: FDA-Public Use
  Company Number: US-PFIZER INC-2008082987

PATIENT
  Sex: Male
  Weight: 65.909 kg

DRUGS (2)
  1. CAVERJECT [Suspect]
     Indication: ERECTILE DYSFUNCTION
  2. LIPITOR [Concomitant]

REACTIONS (1)
  - DRUG INEFFECTIVE [None]
